FAERS Safety Report 5897649-6 (Version None)
Quarter: 2008Q3

REPORT INFORMATION
  Report Type: 
  Country: None (occurrence: None)
  Receive Date: 20080923
  Receipt Date: 20080908
  Transmission Date: 20090109
  Serious: Yes (Hospitalization)
  Sender: FDA-Public Use
  Company Number: 2008001987

PATIENT
  Age: 74 Year
  Sex: Male

DRUGS (11)
  1. ERLOTINIB (ERLOTINIB) (TABLET) (ERLOTINIB) [Suspect]
     Indication: NON-SMALL CELL LUNG CANCER
     Dosage: (150 MG,QD), ORAL
     Route: 048
     Dates: start: 20080626, end: 20080725
  2. GLYBURIDE [Concomitant]
  3. ADALAT CC [Concomitant]
  4. GLUCOBAY [Concomitant]
  5. INDERAL [Concomitant]
  6. OLMETEC (OLMESARTAN) [Concomitant]
  7. LIPITOR [Concomitant]
  8. ROHYPNOL (FLUNITRAZEPAM) [Concomitant]
  9. DEPAS (ETIZOLAM) [Concomitant]
  10. LOXOPROFEN (LOXOPROFEN) [Concomitant]
  11. SELBEX (TEPRENONE) [Concomitant]

REACTIONS (3)
  - DIARRHOEA [None]
  - HYPOGLYCAEMIA [None]
  - RASH [None]
